FAERS Safety Report 9861870 (Version 1)
Quarter: 2014Q1

REPORT INFORMATION
  Report Type: Spontaneous
  Country: CH (occurrence: CH)
  Receive Date: 20140203
  Receipt Date: 20140203
  Transmission Date: 20141002
  Serious: Yes (Hospitalization, Other)
  Sender: FDA-Public Use
  Company Number: CH-ELI_LILLY_AND_COMPANY-CH201401008983

PATIENT
  Age: 12 Year
  Sex: Male

DRUGS (2)
  1. FLUCTINE [Suspect]
     Indication: AUTISM SPECTRUM DISORDER
     Dosage: 10 MG, QD
     Route: 048
     Dates: start: 20131009
  2. RISPERIDONE [Concomitant]
     Indication: AUTISM SPECTRUM DISORDER
     Dosage: 1 MG, QOD
     Route: 048
     Dates: start: 2011

REACTIONS (6)
  - Self injurious behaviour [Unknown]
  - Suicide attempt [Unknown]
  - Suicidal ideation [Unknown]
  - Depressed mood [Unknown]
  - Boredom [Unknown]
  - Off label use [Unknown]
